FAERS Safety Report 19091405 (Version 5)
Quarter: 2021Q3

REPORT INFORMATION
  Report Type: Report from Study
  Country: GB (occurrence: GB)
  Receive Date: 20210405
  Receipt Date: 20210727
  Transmission Date: 20211014
  Serious: Yes (Hospitalization)
  Sender: FDA-Public Use
  Company Number: GB-SA-2021SA092486

PATIENT
  Age: 77 Year
  Sex: Male

DRUGS (16)
  1. AFLIBERCEPT [Suspect]
     Active Substance: AFLIBERCEPT
     Dosage: 50 UL, QD (ONCE)
     Route: 031
     Dates: start: 20191016, end: 20191016
  2. AFLIBERCEPT [Suspect]
     Active Substance: AFLIBERCEPT
     Indication: NEOVASCULAR AGE-RELATED MACULAR DEGENERATION
     Dosage: 50 UL, QD (ONCE); RIGHT EYE
     Route: 031
     Dates: start: 20210208, end: 20210208
  3. AFLIBERCEPT [Suspect]
     Active Substance: AFLIBERCEPT
     Dosage: 50 UL, QD (ONCE)
     Route: 031
     Dates: start: 20201012, end: 20201012
  4. AFLIBERCEPT [Suspect]
     Active Substance: AFLIBERCEPT
     Dosage: 50 UL, QD (ONCE)
     Route: 031
     Dates: start: 20200211, end: 20200211
  5. AFLIBERCEPT [Suspect]
     Active Substance: AFLIBERCEPT
     Dosage: 50 UL, QD (ONCE)
     Route: 031
     Dates: start: 20191213, end: 20191213
  6. AFLIBERCEPT [Suspect]
     Active Substance: AFLIBERCEPT
     Dosage: 50 UL, QD (ONCE)
     Route: 031
     Dates: start: 20200817, end: 20200817
  7. AFLIBERCEPT [Suspect]
     Active Substance: AFLIBERCEPT
     Dosage: 50 UL, QD (ONCE)
     Route: 031
     Dates: start: 20201207, end: 20201207
  8. AMLODIPINE [Concomitant]
     Active Substance: AMLODIPINE BESYLATE
     Indication: HYPERTENSION
     Dosage: UNK
     Route: 065
  9. NAPROXEN. [Concomitant]
     Active Substance: NAPROXEN
     Indication: GOUT
     Dosage: UNK
     Route: 065
  10. CHADOX1 NCOV?19 [Concomitant]
     Dosage: UNK, SECOND DOSE
     Route: 065
     Dates: start: 20210403, end: 20210403
  11. CHADOX1 NCOV?19 [Concomitant]
     Indication: COVID-19 PROPHYLAXIS
     Dosage: UNK, FIRST DOSE
     Route: 065
     Dates: start: 20210130, end: 20210130
  12. AFLIBERCEPT [Suspect]
     Active Substance: AFLIBERCEPT
     Dosage: 50 UL, QD (ONCE)
     Route: 031
     Dates: start: 20190820, end: 20190820
  13. AFLIBERCEPT [Suspect]
     Active Substance: AFLIBERCEPT
     Dosage: 50 UL, QD (ONCE)
     Route: 031
     Dates: start: 20200409, end: 20200409
  14. AFLIBERCEPT [Suspect]
     Active Substance: AFLIBERCEPT
     Dosage: 50 UL, QD (ONCE)
     Route: 031
     Dates: start: 20200622, end: 20200622
  15. AFLIBERCEPT [Suspect]
     Active Substance: AFLIBERCEPT
     Dosage: 50 UL, QD (ONCE)
     Route: 031
     Dates: start: 20190919, end: 20190919
  16. LANSOPRAZOLE. [Concomitant]
     Active Substance: LANSOPRAZOLE
     Indication: REFLUX GASTRITIS
     Dosage: UNK
     Route: 065

REACTIONS (2)
  - Photophobia [Recovering/Resolving]
  - Endophthalmitis [Recovered/Resolved]

NARRATIVE: CASE EVENT DATE: 20210211
